FAERS Safety Report 24101789 (Version 3)
Quarter: 2024Q4

REPORT INFORMATION
  Report Type: Spontaneous
  Country: KZ (occurrence: KZ)
  Receive Date: 20240717
  Receipt Date: 20241119
  Transmission Date: 20250115
  Serious: Yes (Death)
  Sender: ROCHE
  Company Number: KZ-ROCHE-10000028358

PATIENT
  Age: 58 Year

DRUGS (1)
  1. TECENTRIQ [Suspect]
     Active Substance: ATEZOLIZUMAB
     Indication: Non-small cell lung cancer
     Dosage: END OF OCTOBER 2023 TO THE END OF MAY
     Route: 065

REACTIONS (2)
  - Death [Fatal]
  - Back pain [Unknown]
